FAERS Safety Report 6104076-5 (Version None)
Quarter: 2009Q1

REPORT INFORMATION
  Report Type: 
  Country: None (occurrence: None)
  Receive Date: 20090305
  Receipt Date: 20090225
  Transmission Date: 20090719
  Serious: Yes (Death, Hospitalization)
  Sender: FDA-Public Use
  Company Number: TR-ABBOTT-09P-161-0500837-00

PATIENT
  Age: 63 Year
  Sex: Female
  Weight: 65 kg

DRUGS (3)
  1. TARKA [Suspect]
     Indication: HYPERTENSION
     Dosage: 180MG/2MG, 1X1
  2. ARB [Concomitant]
     Indication: HYPERTENSION
  3. DILATREND [Concomitant]
     Indication: HYPERTENSION

REACTIONS (3)
  - BRADYCARDIA [None]
  - CARDIAC DISORDER [None]
  - PALPITATIONS [None]
